FAERS Safety Report 10696628 (Version 1)
Quarter: 2015Q1

REPORT INFORMATION
  Report Type: Spontaneous
  Country: US (occurrence: US)
  Receive Date: 20150107
  Receipt Date: 20150107
  Transmission Date: 20150721
  Serious: No
  Sender: FDA-Public Use
  Company Number: US-BRISTOL-MYERS SQUIBB COMPANY-BMS-2014-003464

PATIENT
  Sex: Female
  Weight: 72 kg

DRUGS (3)
  1. LANTUS [Concomitant]
     Active Substance: INSULIN GLARGINE
     Indication: TYPE 2 DIABETES MELLITUS
  2. BYDUREON [Suspect]
     Active Substance: EXENATIDE
     Indication: TYPE 1 DIABETES MELLITUS
     Dosage: 2 MG, QWK
     Route: 058
  3. HUMALOG [Concomitant]
     Active Substance: INSULIN LISPRO
     Indication: TYPE 2 DIABETES MELLITUS

REACTIONS (1)
  - Injection site swelling [Unknown]
